FAERS Safety Report 12154462 (Version 1)
Quarter: 2016Q1

REPORT INFORMATION
  Report Type: Spontaneous
  Country: US (occurrence: None)
  Receive Date: 20160304
  Receipt Date: 20160304
  Transmission Date: 20160526
  Serious: No
  Sender: FDA-Public Use
  Company Number: None

PATIENT
  Age: 70 Year
  Sex: Female
  Weight: 72.58 kg

DRUGS (1)
  1. PROPOFOL 20MG/20ML [Suspect]
     Active Substance: PROPOFOL
     Indication: ANAESTHESIA
     Route: 042

REACTIONS (4)
  - Phantom pain [None]
  - Burning sensation [None]
  - Contusion [None]
  - Screaming [None]

NARRATIVE: CASE EVENT DATE: 20160218
